FAERS Safety Report 9143610 (Version 2)
Quarter: 2013Q2

REPORT INFORMATION
  Report Type: Spontaneous
  Country: RU (occurrence: RU)
  Receive Date: 20130306
  Receipt Date: 20130419
  Transmission Date: 20140414
  Serious: Yes (Other)
  Sender: FDA-Public Use
  Company Number: RU-JNJFOC-20130215128

PATIENT
  Age: 44 Year
  Sex: Female

DRUGS (4)
  1. TOPAMAX [Suspect]
     Indication: EPILEPSY
     Route: 048
     Dates: start: 2008
  2. KEPPRA [Concomitant]
     Indication: EPILEPSY
     Route: 065
     Dates: start: 2009
  3. FERRUM LEK [Concomitant]
     Route: 065
  4. VITAMIN [Concomitant]
     Route: 065

REACTIONS (1)
  - Iron deficiency anaemia [Not Recovered/Not Resolved]
